FAERS Safety Report 8325250-3 (Version None)
Quarter: 2012Q2

REPORT INFORMATION
  Report Type: 
  Country: None (occurrence: None)
  Receive Date: 20120501
  Receipt Date: 20120418
  Transmission Date: 20120825
  Serious: Yes (Other)
  Sender: FDA-Public Use
  Company Number: JP-CELGENEUS-087-21660-12022724

PATIENT
  Sex: Female
  Weight: 37 kg

DRUGS (9)
  1. ABRAXANE [Suspect]
     Dosage: 330 MILLIGRAM
     Route: 041
     Dates: start: 20110324
  2. MAGNESIUM SULFATE [Concomitant]
     Route: 048
     Dates: start: 20100914
  3. ZOMETA [Concomitant]
     Dosage: 4 MILLIGRAM
     Route: 065
     Dates: start: 20101202
  4. PREDNISOLONE [Concomitant]
     Route: 048
     Dates: start: 20110303, end: 20110414
  5. ABRAXANE [Suspect]
     Indication: BREAST CANCER METASTATIC
     Dosage: 330 MILLIGRAM
     Route: 041
     Dates: start: 20101111
  6. ABRAXANE [Suspect]
     Dosage: 280 MILLIGRAM
     Route: 041
     Dates: start: 20110414, end: 20110414
  7. LANSOPRAZOLE [Concomitant]
     Route: 048
     Dates: start: 20100807
  8. FERROUS CITRATE [Concomitant]
     Route: 048
     Dates: start: 20101125
  9. GRANISETRON HCL [Concomitant]
     Route: 065
     Dates: start: 20101111, end: 20101111

REACTIONS (1)
  - CYSTOID MACULAR OEDEMA [None]
